FAERS Safety Report 15481776 (Version 4)
Quarter: 2022Q1

REPORT INFORMATION
  Report Type: Report from Study
  Country: PT (occurrence: PT)
  Receive Date: 20181010
  Receipt Date: 20220314
  Transmission Date: 20220423
  Serious: Yes (Life-Threatening, Other)
  Sender: FDA-Public Use
  Company Number: PT-AUROBINDO-AUR-APL-2018-049751

PATIENT
  Age: 37 Year
  Sex: Male

DRUGS (17)
  1. DOXORUBICIN [Suspect]
     Active Substance: DOXORUBICIN
     Indication: Hepatitis C
     Dosage: 1 ML OF TRIAMCINOLONE 40 MG INJECTED
     Route: 065
  2. DOXORUBICIN [Suspect]
     Active Substance: DOXORUBICIN
     Indication: HIV infection
     Dosage: UNK
     Route: 048
  3. DOXORUBICIN [Suspect]
     Active Substance: DOXORUBICIN
     Indication: Chronic hepatitis C
  4. FLUCONAZOLE [Suspect]
     Active Substance: FLUCONAZOLE
     Indication: Chronic hepatitis C
     Dosage: 1 ML OF TRIAMCINOLONE 40 MG INJECTED
     Route: 065
  5. FLUCONAZOLE [Suspect]
     Active Substance: FLUCONAZOLE
     Indication: HIV infection
     Dosage: UNK
     Route: 048
  6. FLUCONAZOLE [Suspect]
     Active Substance: FLUCONAZOLE
     Indication: Hepatitis C
  7. OXAZEPAM [Suspect]
     Active Substance: OXAZEPAM
     Indication: Hepatitis C
     Dosage: UNK
     Route: 048
  8. OXAZEPAM [Suspect]
     Active Substance: OXAZEPAM
     Indication: Chronic hepatitis C
  9. OXAZEPAM [Suspect]
     Active Substance: OXAZEPAM
     Indication: HIV infection
  10. SAQUINAVIR [Suspect]
     Active Substance: SAQUINAVIR
     Indication: Chronic hepatitis C
     Dosage: 1 ML OF TRIAMCINOLONE 40 MG INJECTED
     Route: 065
  11. SAQUINAVIR [Suspect]
     Active Substance: SAQUINAVIR
     Indication: Hepatitis C
     Dosage: UNK
     Route: 048
  12. SAQUINAVIR [Suspect]
     Active Substance: SAQUINAVIR
     Indication: HIV infection
  13. SAQUINAVIR [Suspect]
     Active Substance: SAQUINAVIR
     Indication: HIV infection CDC category C
  14. LOPINAVIR\RITONAVIR [Suspect]
     Active Substance: LOPINAVIR\RITONAVIR
     Indication: Chronic hepatitis C
     Dosage: 1 ML OF TRIAMCINOLONE 40 MG INJECTED
     Route: 065
  15. LOPINAVIR\RITONAVIR [Suspect]
     Active Substance: LOPINAVIR\RITONAVIR
     Indication: HIV infection
     Dosage: UNK
     Route: 048
  16. LOPINAVIR\RITONAVIR [Suspect]
     Active Substance: LOPINAVIR\RITONAVIR
     Indication: Hepatitis C
  17. LOPINAVIR\RITONAVIR [Suspect]
     Active Substance: LOPINAVIR\RITONAVIR
     Indication: HIV infection CDC category C

REACTIONS (2)
  - Drug-induced liver injury [Unknown]
  - Hepatic fibrosis [Unknown]
